FAERS Safety Report 11756658 (Version 1)
Quarter: 2015Q4

REPORT INFORMATION
  Report Type: Spontaneous
  Country: US (occurrence: US)
  Receive Date: 20151120
  Receipt Date: 20151120
  Transmission Date: 20160304
  Serious: Yes (Hospitalization)
  Sender: FDA-Public Use
  Company Number: US-ACCORD-033987

PATIENT
  Age: 46 Year
  Sex: Male
  Weight: 86.4 kg

DRUGS (2)
  1. TYVASO [Suspect]
     Active Substance: TREPROSTINIL
     Indication: PULMONARY ARTERIAL HYPERTENSION
     Dosage: 3-9 BREATHS (18-54 MICROGRAMS) FOUR TIMES A DAY, GAS 0.6 MG/ML
     Route: 055
     Dates: start: 20150422
  2. ALLOPURINOL/ALLOPURINOL SODIUM [Suspect]
     Active Substance: ALLOPURINOL SODIUM
     Indication: PRODUCT USED FOR UNKNOWN INDICATION

REACTIONS (1)
  - Gout [Unknown]

NARRATIVE: CASE EVENT DATE: 2015
